FAERS Safety Report 10170453 (Version 1)
Quarter: 2014Q2

REPORT INFORMATION
  Report Type: Spontaneous
  Country: US (occurrence: US)
  Receive Date: 20140513
  Receipt Date: 20140513
  Transmission Date: 20141212
  Serious: Yes (Other)
  Sender: FDA-Public Use
  Company Number: US-NOVEN-14US009533

PATIENT
  Age: 81 Year
  Sex: Male

DRUGS (12)
  1. FENTANYL [Suspect]
     Indication: PAIN
     Dosage: 25 MCG/HR
     Route: 062
     Dates: start: 20140501, end: 20140503
  2. FENTANYL [Suspect]
     Dosage: UNK
  3. AZITHROMYCIN [Suspect]
     Indication: INFECTION
     Dosage: UNK
     Route: 048
     Dates: start: 20140428, end: 201405
  4. TRAMADOL [Concomitant]
     Dosage: UNK
  5. TAMSULOSIN HCL [Concomitant]
     Dosage: UNK
  6. RANITIDINE [Concomitant]
     Dosage: UNK
  7. LANSOPRAZOLE [Concomitant]
     Dosage: UNK
  8. LEVOTHYROXINE SODIUM [Concomitant]
     Dosage: UNK
  9. CLOPIDOGREL BISULFATE [Concomitant]
     Dosage: UNK
  10. ISOSORBIDE DINITRATE [Concomitant]
     Dosage: UNK
  11. CENTRUM SILVER                     /02363801/ [Concomitant]
     Dosage: UNK
  12. MECLIZINE HCL [Concomitant]
     Dosage: UNK

REACTIONS (3)
  - Loss of consciousness [Recovered/Resolved]
  - Drug interaction [None]
  - Headache [Recovered/Resolved]
